FAERS Safety Report 4794282-4 (Version None)
Quarter: 2005Q4

REPORT INFORMATION
  Report Type: 
  Country: None (occurrence: None)
  Receive Date: 20051011
  Receipt Date: 20051005
  Transmission Date: 20060501
  Serious: Yes (Life-Threatening, Hospitalization)
  Sender: FDA-Public Use
  Company Number: GB-GLAXOSMITHKLINE-B0396394A

PATIENT
  Age: 21 Year
  Sex: Male
  Weight: 75 kg

DRUGS (1)
  1. ZYBAN [Suspect]
     Indication: SMOKING CESSATION THERAPY
     Route: 048
     Dates: start: 20050901, end: 20050915

REACTIONS (4)
  - DEPRESSION [None]
  - MOOD ALTERED [None]
  - OVERDOSE [None]
  - SUICIDE ATTEMPT [None]
